FAERS Safety Report 8778263 (Version 2)
Quarter: 2013Q4

REPORT INFORMATION
  Report Type: Spontaneous
  Country: US (occurrence: US)
  Receive Date: 20120911
  Receipt Date: 20131101
  Transmission Date: 20140711
  Serious: No
  Sender: FDA-Public Use
  Company Number: US-009507513-1208USA011768

PATIENT
  Sex: Male

DRUGS (4)
  1. REBETOL [Suspect]
     Indication: HEPATITIS C
     Dosage: UNK
     Dates: start: 20080701, end: 20081001
  2. REBETOL [Suspect]
     Dosage: UNK
     Dates: start: 20120831
  3. PEGASYS [Concomitant]
     Indication: HEPATITIS C
     Dosage: UNK
     Dates: start: 20080701, end: 20081001
  4. PEGASYS [Concomitant]
     Dosage: UNK
     Dates: start: 20120831

REACTIONS (1)
  - Drug ineffective [Unknown]
